FAERS Safety Report 7960117-1 (Version None)
Quarter: 2011Q4

REPORT INFORMATION
  Report Type: 
  Country: None (occurrence: None)
  Receive Date: 20111206
  Receipt Date: 20111130
  Transmission Date: 20120403
  Serious: Yes (Death)
  Sender: FDA-Public Use
  Company Number: PHHY2011NO105885

PATIENT
  Age: 67 Year
  Sex: Female

DRUGS (6)
  1. SERTRALINE HYDROCHLORIDE [Concomitant]
  2. ASPIRIN [Concomitant]
  3. DIPYRIDAMOLE [Concomitant]
  4. NICOTINE [Concomitant]
     Route: 062
  5. ENOXAPARIN [Concomitant]
     Route: 058
  6. CARBAMAZEPINE [Suspect]
     Indication: EPILEPSY
     Dosage: 800 MG, UNK

REACTIONS (1)
  - SUDDEN UNEXPLAINED DEATH IN EPILEPSY [None]
